FAERS Safety Report 20461275 (Version 3)
Quarter: 2022Q1

REPORT INFORMATION
  Report Type: Spontaneous
  Country: CO (occurrence: CO)
  Receive Date: 20220211
  Receipt Date: 20220316
  Transmission Date: 20220423
  Serious: Yes (Hospitalization, Other)
  Sender: FDA-Public Use
  Company Number: CO-PFIZER INC-202200210795

PATIENT
  Age: 58 Year
  Sex: Female

DRUGS (1)
  1. LYRICA [Suspect]
     Active Substance: PREGABALIN
     Indication: Spinal pain
     Dosage: 75 MG
     Route: 048
     Dates: start: 20200627

REACTIONS (1)
  - Pneumonia viral [Recovered/Resolved]

NARRATIVE: CASE EVENT DATE: 20211217
